FAERS Safety Report 6561526-8 (Version None)
Quarter: 2010Q1

REPORT INFORMATION
  Report Type: 
  Country: None (occurrence: None)
  Receive Date: 20100130
  Receipt Date: 20091020
  Transmission Date: 20100710
  Serious: No
  Sender: FDA-Public Use
  Company Number: US-ABBOTT-09P-163-0604604-00

PATIENT
  Age: 56 Year
  Sex: Female

DRUGS (6)
  1. HUMIRA [Suspect]
     Indication: PSORIASIS
     Route: 058
     Dates: start: 20080701, end: 20091009
  2. HUMIRA [Suspect]
     Indication: PSORIATIC ARTHROPATHY
  3. CYMBALTA [Concomitant]
     Indication: RAYNAUD'S PHENOMENON
     Dosage: UNKNOWN
  4. CYMBALTA [Concomitant]
     Indication: NEUROPATHY PERIPHERAL
  5. VITAMINS [Concomitant]
     Indication: RAYNAUD'S PHENOMENON
  6. VITAMINS [Concomitant]
     Indication: NEUROPATHY PERIPHERAL

REACTIONS (4)
  - APHONIA [None]
  - COUGH [None]
  - INFLUENZA [None]
  - OROPHARYNGEAL PAIN [None]
